FAERS Safety Report 5454839-4 (Version None)
Quarter: 2007Q3

REPORT INFORMATION
  Report Type: 
  Country: None (occurrence: None)
  Receive Date: 20070917
  Receipt Date: 20061011
  Transmission Date: 20080115
  Serious: No
  Sender: FDA-Public Use
  Company Number: US-ASTRAZENECA-2006UW19702

PATIENT
  Age: 72 Year
  Sex: Female
  Weight: 71.7 kg

DRUGS (3)
  1. SEROQUEL [Suspect]
     Indication: INSOMNIA
     Route: 048
  2. CYMBALTA [Concomitant]
  3. FISH OIL [Concomitant]

REACTIONS (1)
  - FEELING ABNORMAL [None]
